FAERS Safety Report 10161976 (Version 1)
Quarter: 2014Q2

REPORT INFORMATION
  Report Type: Spontaneous
  Country: US (occurrence: None)
  Receive Date: 20140507
  Receipt Date: 20140507
  Transmission Date: 20141212
  Serious: Yes (Other)
  Sender: FDA-Public Use
  Company Number: AUR-APL-2014-05208

PATIENT
  Age: 28 Year
  Sex: Male

DRUGS (2)
  1. NAPROXEN (NAPROXEN) [Suspect]
     Indication: PRODUCT USED FOR UNKNOWN INDICATION
     Route: 048
  2. ALCOHOL (ETHANOL) [Suspect]
     Indication: PRODUCT USED FOR UNKNOWN INDICATION

REACTIONS (8)
  - Suicide attempt [None]
  - Suicide attempt [None]
  - Somnolence [None]
  - Sinus tachycardia [None]
  - Exposure via ingestion [None]
  - Metabolic acidosis [None]
  - Overdose [None]
  - Mental status changes [None]
